FAERS Safety Report 21668139 (Version 2)
Quarter: 2022Q4

REPORT INFORMATION
  Report Type: Report from Study
  Country: FR (occurrence: None)
  Receive Date: 20221201
  Receipt Date: 20221222
  Transmission Date: 20230113
  Serious: Yes (Death, Other)
  Sender: FDA-Public Use
  Company Number: 2022A388506

PATIENT
  Age: 24939 Day
  Sex: Female
  Weight: 106 kg

DRUGS (3)
  1. EVUSHELD [Suspect]
     Active Substance: CILGAVIMAB\TIXAGEVIMAB
     Indication: COVID-19 prophylaxis
     Dosage: ONCE/SINGLE ADMINISTRATION
     Route: 030
     Dates: start: 20220106
  2. CELLCEPT [Concomitant]
     Active Substance: MYCOPHENOLATE MOFETIL
     Route: 065
  3. TACROLIMUS [Concomitant]
     Active Substance: TACROLIMUS
     Route: 065

REACTIONS (10)
  - Acute respiratory distress syndrome [Fatal]
  - COVID-19 pneumonia [Fatal]
  - Pulmonary fibrosis [Fatal]
  - Pleural effusion [Unknown]
  - Pericardial effusion [Unknown]
  - Aspergillus test positive [Unknown]
  - Pseudomonal bacteraemia [Unknown]
  - Sepsis [Unknown]
  - Urinary tract infection enterococcal [Unknown]
  - Oral herpes [Unknown]

NARRATIVE: CASE EVENT DATE: 20220718
